FAERS Safety Report 4363287-X (Version None)
Quarter: 2004Q2

REPORT INFORMATION
  Report Type: 
  Country: None (occurrence: None)
  Receive Date: 20040524
  Receipt Date: 20040519
  Transmission Date: 20050107
  Serious: Yes (Other)
  Sender: FDA-Public Use
  Company Number: US-BRISTOL-MYERS SQUIBB COMPANY-12591020

PATIENT
  Age: 73 Year
  Sex: Female
  Weight: 69 kg

DRUGS (15)
  1. ERBITUX [Suspect]
     Indication: COLON CANCER METASTATIC
     Route: 042
     Dates: start: 20040325, end: 20040325
  2. BENADRYL [Concomitant]
     Indication: PREMEDICATION
     Route: 042
     Dates: start: 20040325, end: 20040325
  3. DECADRON [Concomitant]
     Indication: PREMEDICATION
     Route: 042
     Dates: start: 20040325, end: 20040325
  4. KYTRIL [Concomitant]
     Indication: PREMEDICATION
     Route: 042
     Dates: start: 20040325, end: 20040325
  5. COUMADIN [Concomitant]
  6. IRINOTECAN [Concomitant]
  7. LASIX [Concomitant]
  8. LEXAPRO [Concomitant]
  9. NIFEREX [Concomitant]
  10. NEURONTIN [Concomitant]
  11. OXYCONTIN [Concomitant]
  12. PEPCID [Concomitant]
  13. POTASSIUM [Concomitant]
  14. SYNTHROID [Concomitant]
  15. ZOFRAN [Concomitant]

REACTIONS (6)
  - CHEST DISCOMFORT [None]
  - DYSPNOEA [None]
  - FLUSHING [None]
  - LOCALISED EXFOLIATION [None]
  - NEURALGIA [None]
  - SKIN FISSURES [None]
